FAERS Safety Report 9844708 (Version 1)
Quarter: 2014Q1

REPORT INFORMATION
  Report Type: Spontaneous
  Country: US (occurrence: None)
  Receive Date: 20140122
  Receipt Date: 20140122
  Transmission Date: 20141002
  Serious: Yes (Death)
  Sender: FDA-Public Use
  Company Number: B0959202A

PATIENT
  Age: 54 Year
  Sex: Female

DRUGS (5)
  1. LAMOTRIGINE [Suspect]
     Indication: PRODUCT USED FOR UNKNOWN INDICATION
     Route: 048
  2. TRAZODONE [Suspect]
     Route: 048
  3. FLUOXETINE (FORMULATION UNKNOWN) (GENERIC) (FLUOXETINE) [Suspect]
     Route: 048
  4. CITALOPRAM [Suspect]
     Route: 048
  5. ETHANOL [Suspect]
     Route: 048

REACTIONS (2)
  - Completed suicide [None]
  - Exposure via ingestion [None]
